FAERS Safety Report 6265403-1 (Version None)
Quarter: 2009Q3

REPORT INFORMATION
  Report Type: 
  Country: None (occurrence: None)
  Receive Date: 20090713
  Receipt Date: 20090706
  Transmission Date: 20100115
  Serious: Yes (Other)
  Sender: FDA-Public Use
  Company Number: IT-BAYER-200924071GPV

PATIENT
  Age: 50 Year
  Sex: Male

DRUGS (2)
  1. LEVITRA [Suspect]
     Indication: DRUG USE FOR UNKNOWN INDICATION
     Dosage: TOTAL DAILY DOSE: 10 MG
     Route: 048
     Dates: start: 20090619, end: 20090619
  2. CORTICOSTEROIDS [Concomitant]
     Indication: HYPERSENSITIVITY

REACTIONS (2)
  - VISUAL IMPAIRMENT [None]
  - VITREOUS DETACHMENT [None]
